FAERS Safety Report 9408260 (Version 1)
Quarter: 2013Q3

REPORT INFORMATION
  Report Type: Spontaneous
  Country: CN (occurrence: None)
  Receive Date: 20130716
  Receipt Date: 20130716
  Transmission Date: 20140515
  Serious: Yes (Other)
  Sender: FDA-Public Use
  Company Number: FK201302413

PATIENT
  Age: 46 Year
  Sex: Male

DRUGS (1)
  1. INTRALIPID [Suspect]
     Indication: MEDICAL DIET
     Dosage: 250 ML, 15 DRIPS PER MINUTE, INTRAVENOUS DRIP
     Route: 041
     Dates: start: 20120208, end: 20120208

REACTIONS (6)
  - Chills [None]
  - Pyrexia [None]
  - Dyspnoea [None]
  - Blood pressure systolic decreased [None]
  - Body temperature increased [None]
  - Infusion related reaction [None]
